FAERS Safety Report 7152471-8 (Version None)
Quarter: 2010Q4

REPORT INFORMATION
  Report Type: 
  Country: None (occurrence: None)
  Receive Date: 20101208
  Receipt Date: 20101208
  Transmission Date: 20110411
  Serious: Yes (Hospitalization)
  Sender: FDA-Public Use
  Company Number: None

PATIENT
  Sex: Female
  Weight: 22.7 kg

DRUGS (1)
  1. VANCOMYCIN [Suspect]
     Indication: POST PROCEDURAL INFECTION
     Dates: start: 20100819, end: 20100905

REACTIONS (3)
  - LEUKOPENIA [None]
  - MEDICAL DEVICE COMPLICATION [None]
  - NEUTROPENIA [None]
